FAERS Safety Report 15993479 (Version 4)
Quarter: 2019Q3

REPORT INFORMATION
  Report Type: Report from Study
  Country: CA (occurrence: CA)
  Receive Date: 20190222
  Receipt Date: 20190720
  Transmission Date: 20191004
  Serious: Yes (Hospitalization, Other)
  Sender: FDA-Public Use
  Company Number: CA-BRISTOL-MYERS SQUIBB COMPANY-BMS-2019-002678

PATIENT
  Age: 60 Year
  Sex: Male

DRUGS (2)
  1. NIVOLUMAB [Suspect]
     Active Substance: NIVOLUMAB
     Indication: RENAL CELL CARCINOMA
     Dosage: 3 MILLIGRAM/KILOGRAM, Q3WK
     Route: 042
     Dates: start: 20190109
  2. YERVOY [Suspect]
     Active Substance: IPILIMUMAB
     Indication: RENAL CELL CARCINOMA
     Dosage: 95 MG (1MG/ML), Q3WK
     Route: 042
     Dates: start: 20190109

REACTIONS (29)
  - Haemoglobin decreased [Unknown]
  - Lymphocyte count decreased [Unknown]
  - Paraesthesia [Unknown]
  - Lung disorder [Unknown]
  - Fatigue [Not Recovered/Not Resolved]
  - Nausea [Recovering/Resolving]
  - Haematocrit decreased [Unknown]
  - Liver disorder [Recovering/Resolving]
  - Thyroid disorder [Recovering/Resolving]
  - Bowel movement irregularity [Unknown]
  - Pain [Recovering/Resolving]
  - Dizziness [Recovering/Resolving]
  - Memory impairment [Recovering/Resolving]
  - Red blood cell count decreased [Unknown]
  - Dyspnoea [Not Recovered/Not Resolved]
  - Pyrexia [Recovering/Resolving]
  - Hot flush [Recovering/Resolving]
  - Adverse event [Unknown]
  - Diarrhoea [Recovered/Resolved]
  - Hepatitis [Unknown]
  - Influenza [Recovering/Resolving]
  - Productive cough [Not Recovered/Not Resolved]
  - Sinusitis [Unknown]
  - Appetite disorder [Recovering/Resolving]
  - Feeling abnormal [Recovering/Resolving]
  - Headache [Recovering/Resolving]
  - Decreased appetite [Recovering/Resolving]
  - Monocyte count increased [Unknown]
  - Blood creatinine increased [Unknown]

NARRATIVE: CASE EVENT DATE: 20190109
